FAERS Safety Report 5573225-X (Version None)
Quarter: 2007Q4

REPORT INFORMATION
  Report Type: 
  Country: None (occurrence: None)
  Receive Date: 20071220
  Receipt Date: 20071206
  Transmission Date: 20080405
  Serious: Yes (Hospitalization, Other)
  Sender: FDA-Public Use
  Company Number: 2007002005

PATIENT
  Age: 70 Year
  Sex: Male

DRUGS (5)
  1. TARCEVA [Suspect]
     Indication: NON-SMALL CELL LUNG CANCER
     Dosage: (150 MG, QD), ORAL
     Route: 048
     Dates: start: 20070415, end: 20071115
  2. PANTOZOL (PANTOPRAZOLE SODIUM) [Concomitant]
  3. ACETYLCYSTEINE [Concomitant]
  4. MEDROL [Concomitant]
  5. AMLODIPINE BESYLATE [Concomitant]

REACTIONS (4)
  - ASTHENIA [None]
  - KAPOSI'S SARCOMA [None]
  - SKIN LESION [None]
  - WEIGHT DECREASED [None]
